FAERS Safety Report 6334181-X (Version None)
Quarter: 2009Q3

REPORT INFORMATION
  Report Type: 
  Country: None (occurrence: None)
  Receive Date: 20090829
  Receipt Date: 20090716
  Transmission Date: 20100115
  Serious: No
  Sender: FDA-Public Use
  Company Number: US-ABBOTT-09P-163-0586119-00

PATIENT
  Sex: Male
  Weight: 102.15 kg

DRUGS (9)
  1. SIMCOR [Suspect]
     Indication: HIGH DENSITY LIPOPROTEIN DECREASED
     Dosage: 500/20MG
     Route: 048
     Dates: start: 20090701
  2. NOVALOG [Concomitant]
     Indication: DRUG USE FOR UNKNOWN INDICATION
     Dosage: 8 UNITS BEFORE BREAKFAST
     Route: 058
  3. NOVALOG [Concomitant]
     Dosage: 12 UNITS BEFORE LUNCH
     Route: 058
  4. NOVALOG [Concomitant]
     Dosage: 22 UNITS BEFORE DINNER
     Route: 058
  5. LANTUS [Concomitant]
     Indication: DRUG USE FOR UNKNOWN INDICATION
     Dosage: AT BEDTIME
     Route: 058
  6. ASPIRIN [Concomitant]
     Indication: DRUG USE FOR UNKNOWN INDICATION
     Route: 048
  7. UNKNOWN HYPERTENSION MEDICATION [Concomitant]
     Indication: HYPERTENSION
  8. FINASTERIDE [Concomitant]
     Indication: DRUG USE FOR UNKNOWN INDICATION
     Route: 048
  9. LISINOPRIL HYDROCHLORTHIAZID [Concomitant]
     Indication: DRUG USE FOR UNKNOWN INDICATION
     Dosage: 20/25MG
     Route: 048

REACTIONS (4)
  - BLOOD GLUCOSE INCREASED [None]
  - COLD SWEAT [None]
  - FLUSHING [None]
  - PARAESTHESIA [None]
